FAERS Safety Report 5532942-8 (Version None)
Quarter: 2007Q4

REPORT INFORMATION
  Report Type: 
  Country: None (occurrence: None)
  Receive Date: 20071128
  Receipt Date: 20071114
  Transmission Date: 20080405
  Serious: Yes (Hospitalization)
  Sender: FDA-Public Use
  Company Number: 237817K07USA

PATIENT
  Age: 55 Year
  Sex: Female

DRUGS (5)
  1. REBIF [Suspect]
     Indication: MULTIPLE SCLEROSIS
     Dosage: 44 MCG, 3 IN 1 WEEKS, SUBCUTANEOUS
     Route: 058
     Dates: start: 20060522
  2. NEURONTIN [Concomitant]
  3. LEXAPRO [Concomitant]
  4. BACLOFEN [Concomitant]
  5. FOSAMAX [Concomitant]

REACTIONS (7)
  - ARTHROPATHY [None]
  - FALL [None]
  - GALLBLADDER DISORDER [None]
  - HEPATIC ENZYME INCREASED [None]
  - HIP FRACTURE [None]
  - LIMB DISCOMFORT [None]
  - SENSORY LOSS [None]
